FAERS Safety Report 10691532 (Version 1)
Quarter: 2015Q1

REPORT INFORMATION
  Report Type: Spontaneous
  Country: VE (occurrence: VE)
  Receive Date: 20150105
  Receipt Date: 20150105
  Transmission Date: 20150720
  Serious: Yes (Hospitalization)
  Sender: FDA-Public Use
  Company Number: VE-SA-2014SA180562

PATIENT
  Age: 17 Year
  Sex: Male

DRUGS (24)
  1. INSULIN GLARGINE [Suspect]
     Active Substance: INSULIN GLARGINE
     Indication: TYPE 1 DIABETES MELLITUS
     Dosage: INTRADERMALLY,
     Route: 023
     Dates: start: 2013
  2. INSULIN GLARGINE [Suspect]
     Active Substance: INSULIN GLARGINE
     Indication: TYPE 1 DIABETES MELLITUS
     Dosage: INTRADERMALLY
     Route: 023
     Dates: start: 2013
  3. LEVEMIR [Suspect]
     Active Substance: INSULIN DETEMIR
     Indication: TYPE 1 DIABETES MELLITUS
     Dosage: DOSE:20 UNIT(S)
     Route: 058
  4. INSULIN ZINC SUSPENSION (CRYSTALLINE) [Suspect]
     Active Substance: INSULIN NOS
     Indication: DIABETIC KETOACIDOSIS
     Dosage: DOSE:10 UNIT(S)
     Route: 040
     Dates: start: 201210
  5. INSULIN ZINC SUSPENSION (CRYSTALLINE) [Suspect]
     Active Substance: INSULIN NOS
     Indication: TYPE 1 DIABETES MELLITUS
     Dosage: 30 MINUTES PRIOR TO EACH MEAL DOSE:15 UNIT(S)
     Route: 058
     Dates: start: 201210
  6. HUMALOG [Suspect]
     Active Substance: INSULIN LISPRO
     Indication: TYPE 1 DIABETES MELLITUS
     Dosage: 15 MIN PRIOR TO EVERY MEAL DOSE:18 UNIT(S)
     Route: 058
     Dates: start: 201211, end: 201212
  7. INSULIN ZINC SUSPENSION (CRYSTALLINE) [Suspect]
     Active Substance: INSULIN NOS
     Indication: DIABETIC KETOACIDOSIS
     Dosage: DOSE:5 UNIT(S)
     Route: 058
     Dates: start: 201212
  8. INSULIN ZINC SUSPENSION (CRYSTALLINE) [Suspect]
     Active Substance: INSULIN NOS
     Indication: TYPE 1 DIABETES MELLITUS
     Dosage: PREPARANDIALLY DOSE:5 UNIT(S)
     Route: 058
     Dates: start: 201210
  9. INSULIN GLARGINE [Suspect]
     Active Substance: INSULIN GLARGINE
     Indication: TYPE 1 DIABETES MELLITUS
     Dosage: INTRADERMALLY,
     Route: 023
     Dates: start: 2013
  10. APIDRA [Suspect]
     Active Substance: INSULIN GLULISINE
     Indication: TYPE 1 DIABETES MELLITUS
     Dosage: PREPARANDIALLY, BOLUS DOSE:10 UNIT(S)
     Route: 058
  11. INSULIN ZINC SUSPENSION (CRYSTALLINE) [Suspect]
     Active Substance: INSULIN NOS
     Indication: DIABETIC KETOACIDOSIS
     Dosage: PREPARANDIALLY DOSE:5 UNIT(S)
     Route: 058
     Dates: start: 201210
  12. INSULIN ZINC SUSPENSION (CRYSTALLINE) [Suspect]
     Active Substance: INSULIN NOS
     Indication: DIABETIC KETOACIDOSIS
     Dosage: DOSE:15 UNIT(S)
     Route: 040
     Dates: start: 201211
  13. INSULIN GLARGINE [Suspect]
     Active Substance: INSULIN GLARGINE
     Indication: TYPE 1 DIABETES MELLITUS
     Dosage: INTRADERMALLY
     Route: 023
     Dates: start: 2013
  14. INSULIN GLARGINE [Suspect]
     Active Substance: INSULIN GLARGINE
     Indication: TYPE 1 DIABETES MELLITUS
     Dosage: INTRADERMALLY,
     Route: 023
     Dates: start: 2013
  15. ISOPHANE INSULIN [Suspect]
     Active Substance: INSULIN NOS
     Indication: TYPE 1 DIABETES MELLITUS
     Dosage: DOSE:14 UNIT(S)
     Route: 058
     Dates: start: 201210
  16. INSULIN ZINC SUSPENSION (CRYSTALLINE) [Suspect]
     Active Substance: INSULIN NOS
     Indication: DIABETIC KETOACIDOSIS
     Dosage: 100 U OF ZINC SUSPENSION DILUTED IN 500 CC OF 0.9 % SALINE SOLUTION AT THE RATE OF 5 IU/KG/HR
     Route: 042
     Dates: start: 201212
  17. INSULIN ZINC SUSPENSION (CRYSTALLINE) [Suspect]
     Active Substance: INSULIN NOS
     Indication: TYPE 1 DIABETES MELLITUS
     Dosage: 100 U OF ZINC SUSPENSION DILUTED IN 500 CC OF 0.9 % SALINE SOLUTION AT THE RATE OF 5 IU/KG/HR
     Route: 042
     Dates: start: 201212
  18. INSULIN GLARGINE [Suspect]
     Active Substance: INSULIN GLARGINE
     Indication: TYPE 1 DIABETES MELLITUS
     Dosage: DOSE:32 UNIT(S)
     Route: 058
     Dates: start: 201211
  19. INSULIN GLARGINE [Suspect]
     Active Substance: INSULIN GLARGINE
     Indication: TYPE 1 DIABETES MELLITUS
     Dosage: INTRADERMALLY
     Route: 023
     Dates: start: 2013
  20. INSULIN ZINC SUSPENSION (CRYSTALLINE) [Suspect]
     Active Substance: INSULIN NOS
     Indication: TYPE 1 DIABETES MELLITUS
     Dosage: DOSE:5 UNIT(S)
     Route: 058
     Dates: start: 201212
  21. INSULIN ZINC SUSPENSION (CRYSTALLINE) [Suspect]
     Active Substance: INSULIN NOS
     Indication: DIABETIC KETOACIDOSIS
     Dosage: 30 MINUTES PRIOR TO EACH MEAL DOSE:15 UNIT(S)
     Route: 058
     Dates: start: 201210
  22. INSULIN ZINC SUSPENSION (CRYSTALLINE) [Suspect]
     Active Substance: INSULIN NOS
     Indication: TYPE 1 DIABETES MELLITUS
     Dosage: DOSE:15 UNIT(S)
     Route: 040
     Dates: start: 201211
  23. ISOPHANE INSULIN [Suspect]
     Active Substance: INSULIN NOS
     Indication: TYPE 1 DIABETES MELLITUS
     Dosage: BOLUS DOSE:10 UNIT(S)
     Route: 058
  24. INSULIN ZINC SUSPENSION (CRYSTALLINE) [Suspect]
     Active Substance: INSULIN NOS
     Indication: TYPE 1 DIABETES MELLITUS
     Dosage: DOSE:10 UNIT(S)
     Route: 040
     Dates: start: 201210

REACTIONS (28)
  - Rash pruritic [Recovered/Resolved]
  - Blood immunoglobulin G increased [Recovered/Resolved]
  - Polydipsia [Unknown]
  - Angioedema [Recovered/Resolved]
  - Local reaction [Recovered/Resolved]
  - Weight decreased [Unknown]
  - Hyperglycaemia [Unknown]
  - Urticaria [Recovered/Resolved]
  - Dyspnoea [Recovered/Resolved]
  - Dehydration [Unknown]
  - Diabetic ketoacidosis [Unknown]
  - Pallor [Unknown]
  - Diabetes mellitus inadequate control [Unknown]
  - Vomiting [Unknown]
  - Papule [Recovered/Resolved]
  - Abdominal pain [Unknown]
  - Hyperhidrosis [Unknown]
  - Pyrexia [Recovered/Resolved]
  - Skin lesion [Recovered/Resolved]
  - Polyuria [Unknown]
  - Body mass index decreased [Unknown]
  - Hypoglycaemia [Unknown]
  - Body temperature decreased [Unknown]
  - Wheezing [Recovered/Resolved]
  - Malaise [Unknown]
  - Type I hypersensitivity [Recovered/Resolved]
  - Pruritus [Recovered/Resolved]
  - Abdominal distension [Unknown]

NARRATIVE: CASE EVENT DATE: 201210
